FAERS Safety Report 18948209 (Version 1)
Quarter: 2021Q1

REPORT INFORMATION
  Report Type: Spontaneous
  Country: NL (occurrence: DE)
  Receive Date: 20210226
  Receipt Date: 20210226
  Transmission Date: 20210420
  Serious: Yes (Other)
  Sender: FDA-Public Use
  Company Number: DE-FRESENIUS KABI-FK202101823

PATIENT
  Age: 69 Year
  Sex: Male

DRUGS (1)
  1. IRINOTECAN (MANUFACTURER UNKNOWN) [Suspect]
     Active Substance: IRINOTECAN
     Indication: RECTAL CANCER
     Dosage: PHARMACEUTICAL DOSE FORM (FREE TEXT): INJECTION FOR INFUSION
     Route: 065
     Dates: start: 20210125, end: 20210125

REACTIONS (2)
  - Mechanical ileus [Recovered/Resolved]
  - Constipation [Recovered/Resolved]

NARRATIVE: CASE EVENT DATE: 20210201
